FAERS Safety Report 9730767 (Version 1)
Quarter: 2013Q4

REPORT INFORMATION
  Report Type: Spontaneous
  Country: US (occurrence: US)
  Receive Date: 20131202
  Receipt Date: 20131202
  Transmission Date: 20140711
  Serious: No
  Sender: FDA-Public Use
  Company Number: US-PFIZER INC-2013338054

PATIENT
  Age: 45 Year
  Sex: Male

DRUGS (2)
  1. REVATIO [Suspect]
     Dosage: 2 DF, UNK
  2. LETAIRIS [Suspect]
     Dosage: 10 MG, 1X/DAY
     Dates: start: 20110714

REACTIONS (1)
  - Insomnia [Unknown]
